FAERS Safety Report 9292846 (Version 1)
Quarter: 2013Q2

REPORT INFORMATION
  Report Type: Spontaneous
  Country: US (occurrence: None)
  Receive Date: 20130515
  Receipt Date: 20130515
  Transmission Date: 20140414
  Serious: Yes (Hospitalization)
  Sender: FDA-Public Use
  Company Number: None

PATIENT
  Age: 70 Year
  Sex: Female
  Weight: 47.63 kg

DRUGS (1)
  1. BRIMONIDINE [Suspect]
     Indication: CEREBROVASCULAR ACCIDENT
     Dosage: 1 DROP IN EACH EYE ONCE A DAY
     Dates: start: 20130123, end: 20130424

REACTIONS (1)
  - Dizziness [None]
